FAERS Safety Report 9895017 (Version 1)
Quarter: 2014Q1

REPORT INFORMATION
  Report Type: Spontaneous
  Country: US (occurrence: US)
  Receive Date: 20140213
  Receipt Date: 20140213
  Transmission Date: 20141002
  Serious: No
  Sender: FDA-Public Use
  Company Number: US-BRISTOL-MYERS SQUIBB COMPANY-17332099

PATIENT
  Age: 42 Year
  Sex: Female
  Weight: 77.1 kg

DRUGS (7)
  1. ABATACEPT SUBQ INJECTION 125MG/ML [Suspect]
     Dosage: 1 DF:125MG/ML
     Route: 058
  2. PREVACID [Concomitant]
     Dosage: PREVACID GRA
  3. FOLIC ACID [Concomitant]
     Dosage: CAPS
  4. METHOTREXATE [Concomitant]
     Dosage: INJ
  5. PROBIOTICA [Concomitant]
  6. PROBIOTICA [Concomitant]
     Dosage: CAPS
  7. GOLD [Concomitant]

REACTIONS (1)
  - Drug ineffective [Unknown]
